FAERS Safety Report 13743223 (Version 1)
Quarter: 2017Q3

REPORT INFORMATION
  Report Type: Spontaneous
  Country: US (occurrence: US)
  Receive Date: 20170711
  Receipt Date: 20170711
  Transmission Date: 20171127
  Serious: Yes (Hospitalization)
  Sender: FDA-Public Use
  Company Number: US-IMPAX LABORATORIES, INC-2016-IPXL-01347

PATIENT
  Sex: Male
  Weight: 72 kg

DRUGS (7)
  1. BUPROPION HYDROCHLORIDE EXTENDED-RELEASE [Suspect]
     Active Substance: BUPROPION HYDROCHLORIDE
     Dosage: 150 MG 3 TABLETS DAILY IN MORNING
     Route: 065
     Dates: start: 20141007, end: 20141224
  2. BUPROPION HYDROCHLORIDE EXTENDED-RELEASE [Suspect]
     Active Substance: BUPROPION HYDROCHLORIDE
     Indication: DEPRESSION
     Dosage: 150 MG 3 TABLETS DAILY IN MORNING
     Route: 048
     Dates: start: 20090515, end: 2012
  3. BUPROPION HYDROCHLORIDE EXTENDED-RELEASE [Suspect]
     Active Substance: BUPROPION HYDROCHLORIDE
     Dosage: 150 MG 3 TABLETS DAILY IN MORNING
     Route: 065
     Dates: start: 201404, end: 20141006
  4. BUPROPION HYDROCHLORIDE EXTENDED-RELEASE [Suspect]
     Active Substance: BUPROPION HYDROCHLORIDE
     Dosage: 150 MG 3 TABLETS DAILY IN MORNING
     Route: 065
     Dates: start: 20141225, end: 20150324
  5. LAMOTRIGINE. [Concomitant]
     Active Substance: LAMOTRIGINE
     Indication: DEPRESSION
     Dosage: 200 MG
     Route: 048
  6. BUPROPION HYDROCHLORIDE EXTENDED-RELEASE [Suspect]
     Active Substance: BUPROPION HYDROCHLORIDE
     Dosage: 150 MG 3 TABLETS DAILY IN MORNING
     Route: 065
     Dates: start: 20150325, end: 20150628
  7. SYNTHROID [Concomitant]
     Active Substance: LEVOTHYROXINE SODIUM
     Indication: THYROID CANCER
     Dosage: 150 ?G, UNK
     Route: 048

REACTIONS (7)
  - Hypoaesthesia [Recovered/Resolved]
  - Vision blurred [Recovered/Resolved]
  - Hypomania [Recovered/Resolved]
  - Paraesthesia [Recovered/Resolved]
  - Product odour abnormal [Unknown]
  - Migraine [Recovered/Resolved]
  - Product solubility abnormal [Unknown]

NARRATIVE: CASE EVENT DATE: 2012
